FAERS Safety Report 6688906-4 (Version None)
Quarter: 2010Q2

REPORT INFORMATION
  Report Type: 
  Country: None (occurrence: None)
  Receive Date: 20100413
  Receipt Date: 20100409
  Transmission Date: 20101027
  Serious: Yes (Hospitalization)
  Sender: FDA-Public Use
  Company Number: 2010SP020519

PATIENT
  Age: 36 Year
  Sex: Female

DRUGS (13)
  1. NOXAFIL [Suspect]
     Indication: DRUG USE FOR UNKNOWN INDICATION
     Dosage: 600 MG; QD; PO
     Route: 048
     Dates: start: 20081201, end: 20081208
  2. MOXIFLOXACIN HYDROCHLORIDE [Suspect]
     Indication: ACUTE MYELOID LEUKAEMIA
     Dosage: 400 MG; ; PO
     Route: 048
     Dates: start: 20081211, end: 20090101
  3. ZOPHREN (ONDANSETRON HYDROCHLORIDE /00955302/) [Suspect]
     Indication: MYELOID LEUKAEMIA
     Dosage: ; IV
     Route: 042
     Dates: start: 20081015, end: 20090113
  4. CYTARABINE [Suspect]
     Indication: MYELOID LEUKAEMIA
     Dosage: ; IV
     Route: 042
     Dates: start: 20081015, end: 20090113
  5. ACUPAN [Suspect]
     Indication: DRUG USE FOR UNKNOWN INDICATION
     Dosage: 120 MG; QD; IV
     Route: 042
     Dates: start: 20081202, end: 20081211
  6. AMIKIN [Concomitant]
  7. VANCOMYCIN HCL [Concomitant]
  8. BACTRIM [Concomitant]
  9. LUTENYL [Concomitant]
  10. ZELITREX [Concomitant]
  11. MOPRAL [Concomitant]
  12. GRANOCYTE [Concomitant]
  13. TAZOCILLINE [Concomitant]

REACTIONS (3)
  - DRUG INTOLERANCE [None]
  - PALPITATIONS [None]
  - VENTRICULAR EXTRASYSTOLES [None]
